FAERS Safety Report 4650435-7 (Version None)
Quarter: 2005Q2

REPORT INFORMATION
  Report Type: 
  Country: None (occurrence: None)
  Receive Date: 20050429
  Receipt Date: 20050419
  Transmission Date: 20051028
  Serious: Yes (Other)
  Sender: FDA-Public Use
  Company Number: 2005063728

PATIENT
  Sex: Male

DRUGS (1)
  1. VIAGRA [Suspect]
     Indication: ILL-DEFINED DISORDER
     Dosage: AS NECESSARY, ORAL
     Route: 048

REACTIONS (2)
  - BLINDNESS UNILATERAL [None]
  - OCULAR VASCULAR DISORDER [None]
